FAERS Safety Report 9732492 (Version 2)
Quarter: 2014Q2

REPORT INFORMATION
  Report Type: Spontaneous
  Country: US (occurrence: US)
  Receive Date: 20131205
  Receipt Date: 20140403
  Transmission Date: 20141212
  Serious: No
  Sender: FDA-Public Use
  Company Number: US-009507513-1312USA002440

PATIENT
  Age: 64 Year
  Sex: Female
  Weight: 74.83 kg

DRUGS (5)
  1. OXYTROL FOR WOMEN [Suspect]
     Indication: URGE INCONTINENCE
     Dosage: 1 DF, Q4D
     Route: 062
     Dates: start: 20131102, end: 20131106
  2. METFORMIN HYDROCHLORIDE [Concomitant]
     Indication: DIABETES MELLITUS
     Dosage: 1000 MG, UNKNOWN
  3. LISINOPRIL [Concomitant]
     Indication: BLOOD PRESSURE
     Dosage: UNK, UNKNOWN
  4. PRAVASTATIN SODIUM [Concomitant]
     Indication: BLOOD CHOLESTEROL
     Dosage: 40 MG, UNKNOWN
  5. PAROXETINE [Concomitant]
     Indication: ANXIETY
     Dosage: 10 MG, UNKNOWN

REACTIONS (7)
  - Application site burn [Recovered/Resolved]
  - Application site swelling [Recovered/Resolved]
  - Application site pain [Recovered/Resolved]
  - Application site vesicles [Recovered/Resolved]
  - Application site discolouration [Not Recovered/Not Resolved]
  - Application site erythema [Recovered/Resolved]
  - Pruritus [Recovered/Resolved]
